FAERS Safety Report 16977387 (Version 1)
Quarter: 2019Q4

REPORT INFORMATION
  Report Type: Spontaneous
  Country: CA (occurrence: CA)
  Receive Date: 20191031
  Receipt Date: 20191031
  Transmission Date: 20200122
  Serious: Yes (Other)
  Sender: FDA-Public Use
  Company Number: CA-ROCHE-2450844

PATIENT
  Age: 38 Year
  Sex: Female

DRUGS (1)
  1. OCREVUS [Suspect]
     Active Substance: OCRELIZUMAB
     Indication: PRODUCT USED FOR UNKNOWN INDICATION
     Dosage: INITIAL TWO DOSES FOLLOWED 6 MONTHS LATER WITH THE 600 MG DOSE
     Route: 065

REACTIONS (4)
  - Acute hepatic failure [Unknown]
  - Pneumonia [Unknown]
  - Loss of consciousness [Unknown]
  - Fatigue [Unknown]
